FAERS Safety Report 4774037-7 (Version None)
Quarter: 2005Q3

REPORT INFORMATION
  Report Type: 
  Country: None (occurrence: None)
  Receive Date: 20050920
  Receipt Date: 20050912
  Transmission Date: 20060218
  Serious: Yes (Hospitalization, Disabling)
  Sender: FDA-Public Use
  Company Number: GB-ABBOTT-05P-167-0310962-00

PATIENT
  Age: 53 Year
  Sex: Female
  Weight: 151 kg

DRUGS (6)
  1. REDUCTIL 10MG [Suspect]
     Indication: OBESITY
     Route: 048
     Dates: start: 20050322, end: 20050505
  2. LEVOTHYROXINE SODIUM [Concomitant]
     Indication: HYPOTHYROIDISM
     Route: 048
  3. ORLISTAT [Concomitant]
     Indication: OBESITY
     Route: 048
     Dates: start: 20030901, end: 20050321
  4. ATORVASTATIN [Concomitant]
     Indication: BLOOD CHOLESTEROL INCREASED
     Route: 048
     Dates: start: 20050201, end: 20050321
  5. RAMIPRIL [Concomitant]
     Indication: HYPERTENSION
     Route: 048
     Dates: start: 20040801
  6. ACETAMINOPHEN W/ PROPOXYPHENE HCL [Concomitant]
     Indication: ARTHRALGIA
     Dosage: 4-6
     Route: 048
     Dates: start: 20020701

REACTIONS (1)
  - MYELOPATHY [None]
